FAERS Safety Report 6205155-4 (Version None)
Quarter: 2009Q2

REPORT INFORMATION
  Report Type: 
  Country: None (occurrence: None)
  Receive Date: 20090527
  Receipt Date: 20090317
  Transmission Date: 20091009
  Serious: No
  Sender: FDA-Public Use
  Company Number: US-ABBOTT-09P-163-0559690-00

PATIENT
  Sex: Male
  Weight: 99.88 kg

DRUGS (5)
  1. SIMCOR [Suspect]
     Indication: BLOOD TRIGLYCERIDES INCREASED
     Dosage: 500/20MG
     Route: 048
  2. SIMCOR [Suspect]
     Indication: BLOOD CHOLESTEROL INCREASED
     Dosage: FORM: 1000/20MG
     Route: 048
     Dates: start: 20090201
  3. SULINDAC [Concomitant]
     Indication: DRUG USE FOR UNKNOWN INDICATION
     Route: 048
  4. FENOGLIDE [Concomitant]
     Indication: DRUG USE FOR UNKNOWN INDICATION
  5. ENBREL [Concomitant]
     Indication: ARTHRALGIA
     Route: 050

REACTIONS (3)
  - BLOOD PRESSURE INCREASED [None]
  - FEELING COLD [None]
  - FLUSHING [None]
